FAERS Safety Report 4432038-2 (Version None)
Quarter: 2004Q3

REPORT INFORMATION
  Report Type: 
  Country: None (occurrence: None)
  Receive Date: 20040825
  Receipt Date: 20040817
  Transmission Date: 20050211
  Serious: Yes (Hospitalization)
  Sender: FDA-Public Use
  Company Number: AT-BRISTOL-MYERS SQUIBB COMPANY-12680625

PATIENT
  Age: 76 Year
  Sex: Female

DRUGS (4)
  1. CETUXIMAB [Suspect]
     Indication: COLORECTAL CANCER METASTATIC
     Dosage: PT HAD REC'D ONLY 15 MIN OF LD AND STUDY DRUG DISCONTINUED DUE TO PREVIOUS EVENT.
     Route: 041
     Dates: start: 20040127, end: 20040127
  2. LEUCOVORIN [Suspect]
     Indication: COLORECTAL CANCER METASTATIC
     Dosage: NO DOSING INFO PROVIDED
     Route: 042
     Dates: start: 20040129
  3. OXALIPLATIN [Suspect]
     Indication: COLORECTAL CANCER METASTATIC
     Dosage: NO DOSING INFO PROVIDED
     Route: 042
     Dates: start: 20040129
  4. FLUOROURACIL [Suspect]
     Indication: COLORECTAL CANCER METASTATIC
     Dosage: NO DOSING INFO PROVIDED
     Route: 042
     Dates: start: 20040129

REACTIONS (4)
  - ANAPHYLACTIC REACTION [None]
  - GENERAL PHYSICAL HEALTH DETERIORATION [None]
  - NAUSEA [None]
  - VOMITING [None]
